FAERS Safety Report 8470150-1 (Version None)
Quarter: 2012Q2

REPORT INFORMATION
  Report Type: 
  Country: None (occurrence: None)
  Receive Date: 20120627
  Receipt Date: 20120613
  Transmission Date: 20120825
  Serious: Yes (Hospitalization)
  Sender: FDA-Public Use
  Company Number: DE-AMGEN-DEUSP2012038225

PATIENT
  Age: 16 Year
  Sex: Female

DRUGS (2)
  1. ENBREL [Suspect]
     Indication: JUVENILE ARTHRITIS
     Dosage: 25 MG, 2X/WEEK
     Dates: start: 20100101
  2. METHOTREXATE SODIUM [Concomitant]
     Dosage: UNK

REACTIONS (2)
  - PALPITATIONS [None]
  - BLOOD CALCIUM DECREASED [None]
